FAERS Safety Report 5031227-6 (Version None)
Quarter: 2006Q2

REPORT INFORMATION
  Report Type: 
  Country: None (occurrence: None)
  Receive Date: 20060621
  Receipt Date: 20060424
  Transmission Date: 20061013
  Serious: No
  Sender: FDA-Public Use
  Company Number: US-GLAXOSMITHKLINE-A0602985A

PATIENT
  Age: 50 Year
  Sex: Male

DRUGS (2)
  1. AVANDARYL [Suspect]
     Dosage: 1TAB PER DAY
     Route: 048
     Dates: start: 20060418
  2. LISINOPRIL [Concomitant]

REACTIONS (1)
  - VISUAL DISTURBANCE [None]
